FAERS Safety Report 4297174-2 (Version None)
Quarter: 2004Q1

REPORT INFORMATION
  Report Type: 
  Country: None (occurrence: None)
  Receive Date: 20040213
  Receipt Date: 20040204
  Transmission Date: 20041129
  Serious: Yes (Other)
  Sender: FDA-Public Use
  Company Number: 2003-09-1414

PATIENT
  Age: 14 Year
  Sex: Male
  Weight: 54.4316 kg

DRUGS (4)
  1. ALBUTEROL [Suspect]
     Indication: ASTHMA
     Dosage: 2 PUFFS BID ORAL AER IN; ORAL AER INH; 2 PUFFS BID ORAL AER INH; 2 PUFFS BID ORAL AER INH
     Route: 055
     Dates: start: 19980101, end: 19980101
  2. ALBUTEROL [Suspect]
     Indication: ASTHMA
     Dosage: 2 PUFFS BID ORAL AER IN; ORAL AER INH; 2 PUFFS BID ORAL AER INH; 2 PUFFS BID ORAL AER INH
     Route: 055
     Dates: start: 20000101, end: 20000101
  3. ALBUTEROL [Suspect]
     Indication: ASTHMA
     Dosage: 2 PUFFS BID ORAL AER IN; ORAL AER INH; 2 PUFFS BID ORAL AER INH; 2 PUFFS BID ORAL AER INH
     Route: 055
     Dates: start: 20020101, end: 20020101
  4. ALBUTEROL [Suspect]
     Indication: ASTHMA
     Dosage: 2 PUFFS BID ORAL AER IN; ORAL AER INH; 2 PUFFS BID ORAL AER INH; 2 PUFFS BID ORAL AER INH
     Route: 055
     Dates: start: 19980101

REACTIONS (3)
  - BRONCHOSPASM [None]
  - DRUG INEFFECTIVE [None]
  - PHARMACEUTICAL PRODUCT COMPLAINT [None]
